FAERS Safety Report 17314837 (Version 4)
Quarter: 2020Q1

REPORT INFORMATION
  Report Type: Report from Study
  Country: IE (occurrence: IE)
  Receive Date: 20200124
  Receipt Date: 20200226
  Transmission Date: 20200409
  Serious: Yes (Other)
  Sender: FDA-Public Use
  Company Number: IE-UCBSA-2020002299

PATIENT
  Age: 46 Year
  Sex: Female
  Weight: 64 kg

DRUGS (7)
  1. PREDNISOLONE [PREDNISOLONE ACETATE] [Concomitant]
     Indication: RHEUMATOID ARTHRITIS
     Dosage: 30 MILLIGRAM
     Route: 048
     Dates: start: 20191220, end: 20191225
  2. HYDROXYCHLOROQUINE [Concomitant]
     Active Substance: HYDROXYCHLOROQUINE
     Indication: RHEUMATOID ARTHRITIS
  3. PLAQUENIL [Concomitant]
     Active Substance: HYDROXYCHLOROQUINE SULFATE
     Indication: RHEUMATOID ARTHRITIS
     Dosage: 200 MILLIGRAM, 2X/DAY (BID)
     Route: 048
     Dates: start: 201908
  4. LEFLUNOMIDE. [Concomitant]
     Active Substance: LEFLUNOMIDE
     Indication: RHEUMATOID ARTHRITIS
     Dosage: UNK
     Route: 048
     Dates: start: 201908
  5. CERTOLIZUMAB PEGOL [Suspect]
     Active Substance: CERTOLIZUMAB PEGOL
     Indication: RHEUMATOID ARTHRITIS
     Dosage: 400 MILLIGRAM, EV 2 WEEKS(QOW)
     Route: 058
     Dates: start: 20200113, end: 20200113
  6. PREDNISOLONE [PREDNISOLONE ACETATE] [Concomitant]
     Dosage: 25 MG AND THEN REDUCED EVERY 3 DAYS TO 0 MG - FINISHED 11/JAN/2020
     Route: 048
     Dates: end: 20200111
  7. ARCOXIA [Concomitant]
     Active Substance: ETORICOXIB
     Indication: RHEUMATOID ARTHRITIS
     Dosage: 60 MILLIGRAM
     Route: 048
     Dates: start: 201901

REACTIONS (1)
  - Anaphylactic reaction [Not Recovered/Not Resolved]

NARRATIVE: CASE EVENT DATE: 20200113
